FAERS Safety Report 8986034 (Version 1)
Quarter: 2012Q4

REPORT INFORMATION
  Report Type: Spontaneous
  Country: US (occurrence: None)
  Receive Date: 20121214
  Receipt Date: 20121214
  Transmission Date: 20130627
  Serious: Yes (Hospitalization)
  Sender: FDA-Public Use
  Company Number: IBUP20120009

PATIENT
  Age: 43 Year
  Sex: Female

DRUGS (1)
  1. IBUPROFEN [Suspect]
     Indication: PRODUCT USED FOR UNKNOWN INDICATION
     Dosage: 159 in 1 D
     Route: 048
     Dates: start: 200908, end: 200908

REACTIONS (8)
  - Coma [None]
  - Heart rate decreased [None]
  - Blood pressure decreased [None]
  - Oxygen saturation decreased [None]
  - Haemodialysis [None]
  - Acidosis [None]
  - Drug screen positive [None]
  - Respiratory failure [None]
